FAERS Safety Report 19978383 (Version 1)
Quarter: 2021Q4

REPORT INFORMATION
  Report Type: Spontaneous
  Country: US (occurrence: US)
  Receive Date: 20211020
  Receipt Date: 20211020
  Transmission Date: 20220303
  Serious: Yes (Death)
  Sender: FDA-Public Use
  Company Number: None

PATIENT
  Age: 73 Year
  Sex: Female
  Weight: 49.9 kg

DRUGS (11)
  1. MYCOPHENOLIC ACID [Suspect]
     Active Substance: MYCOPHENOLIC ACID
     Indication: Renal transplant
     Route: 048
     Dates: start: 20191220, end: 20211019
  2. GENGRAF [Suspect]
     Active Substance: CYCLOSPORINE
     Indication: Renal transplant
     Route: 048
     Dates: start: 20191220, end: 20211019
  3. Coreg 25mg [Concomitant]
     Dates: start: 201609, end: 20211019
  4. Omeprazole 20mg Sep [Concomitant]
     Dates: start: 201609, end: 20211019
  5. Coumadin 3mg [Concomitant]
     Dates: start: 201609, end: 20211019
  6. ATORVASTATIN [Concomitant]
     Active Substance: ATORVASTATIN
     Dates: start: 201609, end: 20211019
  7. SPIRONOLACTONE [Concomitant]
     Active Substance: SPIRONOLACTONE
     Dates: start: 201609, end: 20211019
  8. ALLOPURINOL [Concomitant]
     Active Substance: ALLOPURINOL
     Dates: start: 201609, end: 20211019
  9. LANTUS [Concomitant]
     Active Substance: INSULIN GLARGINE
     Dates: start: 201609, end: 20211019
  10. ALBUTEROL SULFATE [Concomitant]
     Active Substance: ALBUTEROL SULFATE
     Dates: start: 201609, end: 20211019
  11. TORSEMIDE [Concomitant]
     Active Substance: TORSEMIDE
     Dates: start: 201609, end: 20211019

REACTIONS (1)
  - Death [None]

NARRATIVE: CASE EVENT DATE: 20211019
